FAERS Safety Report 20526180 (Version 1)
Quarter: 2022Q1

REPORT INFORMATION
  Report Type: Spontaneous
  Country: US (occurrence: US)
  Receive Date: 20220228
  Receipt Date: 20220228
  Transmission Date: 20220423
  Serious: No
  Sender: FDA-Public Use
  Company Number: US-HRARD-2021000585

PATIENT

DRUGS (1)
  1. METOPIRONE [Suspect]
     Active Substance: METYRAPONE
     Route: 065
     Dates: start: 20210627

REACTIONS (4)
  - Malaise [Unknown]
  - Product odour abnormal [Unknown]
  - Product taste abnormal [Unknown]
  - Product physical issue [Unknown]

NARRATIVE: CASE EVENT DATE: 20210627
